FAERS Safety Report 14271354 (Version 3)
Quarter: 2018Q1

REPORT INFORMATION
  Report Type: Spontaneous
  Country: RU (occurrence: RU)
  Receive Date: 20171211
  Receipt Date: 20180314
  Transmission Date: 20180508
  Serious: Yes (Death, Other)
  Sender: FDA-Public Use
  Company Number: RU-REGENERON PHARMACEUTICALS, INC.-2017-28758

PATIENT

DRUGS (1)
  1. EYLEA [Suspect]
     Active Substance: AFLIBERCEPT
     Indication: RETINOPATHY OF PREMATURITY
     Dosage: UNK
     Dates: start: 20170630

REACTIONS (16)
  - Brain injury [Fatal]
  - Iris vascular disorder [Unknown]
  - Drug administered to patient of inappropriate age [Unknown]
  - Central nervous system haemorrhage [Fatal]
  - Patent ductus arteriosus [Fatal]
  - Anaemia neonatal [Fatal]
  - Hydrocephalus [Fatal]
  - Intraventricular haemorrhage [Fatal]
  - Retinal neovascularisation [Unknown]
  - Product use in unapproved indication [Unknown]
  - Bronchopulmonary dysplasia [Fatal]
  - Congenital pneumonia [Fatal]
  - Necrotising colitis [Fatal]
  - Off label use [Unknown]
  - Ventricular septal defect [Fatal]
  - Pupil fixed [Unknown]
